FAERS Safety Report 6680712-X (Version None)
Quarter: 2010Q2

REPORT INFORMATION
  Report Type: 
  Country: None (occurrence: None)
  Receive Date: 20100414
  Receipt Date: 20100406
  Transmission Date: 20101027
  Serious: Yes (Disabling)
  Sender: FDA-Public Use
  Company Number: FR-ASTRAZENECA-2010SE15430

PATIENT
  Age: 15882 Day
  Sex: Male

DRUGS (2)
  1. CRESTOR [Suspect]
     Indication: HYPERCHOLESTEROLAEMIA
     Dosage: 5MG EVERY EVENING
     Route: 048
     Dates: start: 20081201, end: 20100211
  2. ATRIPLA [Suspect]
     Indication: HIV TEST POSITIVE
     Dosage: EFAVIRENZ 600MG +  EMTRICITABINE 200MG + TENOFOVIRDISOPROXIL 245MG, ONE DF EVERY EVENING
     Route: 048
     Dates: start: 20090215

REACTIONS (2)
  - ASTHENIA [None]
  - DYSPNOEA [None]
